FAERS Safety Report 19588012 (Version 1)
Quarter: 2021Q3

REPORT INFORMATION
  Report Type: Spontaneous
  Country: US (occurrence: US)
  Receive Date: 20210721
  Receipt Date: 20210721
  Transmission Date: 20211014
  Serious: Yes (Other)
  Sender: FDA-Public Use
  Company Number: None

PATIENT
  Age: 70 Year
  Sex: Female
  Weight: 63 kg

DRUGS (22)
  1. BROMELAIN [Concomitant]
     Active Substance: BROMELAINS
  2. VISINE [Concomitant]
     Active Substance: TETRAHYDROZOLINE HYDROCHLORIDE
  3. OMEPRAZOLE. [Concomitant]
     Active Substance: OMEPRAZOLE
  4. COENZYME Q10 [Concomitant]
     Active Substance: DIETARY SUPPLEMENT\UBIDECARENONE
  5. OCCUVITE [Concomitant]
  6. IMATINIB. [Suspect]
     Active Substance: IMATINIB MESYLATE
     Indication: GASTROINTESTINAL STROMAL TUMOUR
     Route: 048
     Dates: start: 20210114
  7. CRANBERRY. [Concomitant]
     Active Substance: CRANBERRY
  8. MAGNESIUM CITRATE. [Concomitant]
     Active Substance: MAGNESIUM CITRATE
  9. CBD OIL [Concomitant]
     Active Substance: CANNABIDIOL\HERBALS
  10. NASONEX [Concomitant]
     Active Substance: MOMETASONE FUROATE
  11. GARLIC. [Concomitant]
     Active Substance: GARLIC
  12. MILK THISTLE [Concomitant]
     Active Substance: DIETARY SUPPLEMENT\HERBALS\MILK THISTLE
  13. ADVIL [Concomitant]
     Active Substance: IBUPROFEN
  14. GUAIFENESIN. [Concomitant]
     Active Substance: GUAIFENESIN
  15. MELATONIN [Concomitant]
     Active Substance: MELATONIN
  16. VITAMIN C [Concomitant]
     Active Substance: ASCORBIC ACID
  17. TUMS ULTRA [Concomitant]
     Active Substance: CALCIUM CARBONATE
  18. ASHWAGANDHA [Concomitant]
     Active Substance: HERBALS
  19. VITAMIN B COMPLEX [Concomitant]
     Active Substance: CYANOCOBALAMIN\DEXPANTHENOL\NIACINAMIDE\PYRIDOXINE HYDROCHLORIDE\RIBOFLAVIN 5^-PHOSPHATE SODIUM\THIAMINE HYDROCHLORIDE\VITAMIN B COMPLEX
  20. EGGS SHELL CALCIUM + D3 [Concomitant]
  21. CHICORY [Concomitant]
  22. KONSYL [Concomitant]
     Active Substance: PSYLLIUM HUSK

REACTIONS (2)
  - Paraesthesia [None]
  - Feeling hot [None]

NARRATIVE: CASE EVENT DATE: 20210721
